FAERS Safety Report 5924177-1 (Version None)
Quarter: 2008Q4

REPORT INFORMATION
  Report Type: 
  Country: None (occurrence: None)
  Receive Date: 20081020
  Receipt Date: 20081013
  Transmission Date: 20090506
  Serious: Yes (Other)
  Sender: FDA-Public Use
  Company Number: US-JNJCH-2008052131

PATIENT
  Age: 79 Year
  Sex: Male
  Weight: 61.2 kg

DRUGS (1)
  1. ROGAINE 5% FOAM [Suspect]
     Indication: ALOPECIA
     Dosage: TEXT:ABOUT A FULL CAPFUL TWICE A DAY
     Route: 061
     Dates: start: 20080101, end: 20081007

REACTIONS (6)
  - DYSPNOEA [None]
  - HEART RATE INCREASED [None]
  - OCULAR HYPERAEMIA [None]
  - OVERDOSE [None]
  - PRURITUS GENERALISED [None]
  - SKIN DISORDER [None]
